FAERS Safety Report 6963277-4 (Version None)
Quarter: 2010Q3

REPORT INFORMATION
  Report Type: 
  Country: None (occurrence: None)
  Receive Date: 20100902
  Receipt Date: 20100825
  Transmission Date: 20110219
  Serious: Yes (Hospitalization)
  Sender: FDA-Public Use
  Company Number: US-B.I. PHARMACEUTICALS,INC./RIDGEFIELD-2010-BP-09660BP

PATIENT
  Age: 85 Year
  Sex: Female

DRUGS (1)
  1. MIRAPEX [Suspect]
     Indication: RESTLESS LEGS SYNDROME
     Dosage: 1.25 MG
     Route: 048
     Dates: end: 20100822

REACTIONS (3)
  - ENERGY INCREASED [None]
  - HALLUCINATION [None]
  - JOINT INJURY [None]
